FAERS Safety Report 8804801 (Version 3)
Quarter: 2013Q2

REPORT INFORMATION
  Report Type: Report from Study
  Country: DE (occurrence: DE)
  Receive Date: 20120924
  Receipt Date: 20130612
  Transmission Date: 20140414
  Serious: Yes (Life-Threatening, Hospitalization, Other)
  Sender: FDA-Public Use
  Company Number: DE-ABBOTT-12P-062-0985994-00

PATIENT
  Age: 75 Year
  Sex: Male

DRUGS (1)
  1. TRENANTONE [Suspect]
     Indication: PROSTATE CANCER
     Route: 058
     Dates: start: 20111102

REACTIONS (4)
  - Renal cancer [Unknown]
  - Deep vein thrombosis [Recovered/Resolved]
  - Anaemia postoperative [Unknown]
  - Pulmonary embolism [Recovered/Resolved]
